FAERS Safety Report 7208991-0 (Version None)
Quarter: 2011Q1

REPORT INFORMATION
  Report Type: 
  Country: None (occurrence: None)
  Receive Date: 20110104
  Receipt Date: 20101105
  Transmission Date: 20110831
  Serious: Yes (Life-Threatening, Hospitalization)
  Sender: FDA-Public Use
  Company Number: GXKR2010JP12544

PATIENT
  Sex: Male
  Weight: 59 kg

DRUGS (18)
  1. CALTAN [Concomitant]
     Dosage: 1000MG
     Route: 048
     Dates: start: 20100930
  2. ADALAT CC [Concomitant]
     Dosage: 20MG
     Route: 048
     Dates: start: 20100930
  3. CEFTRIAXONE SODIUM [Suspect]
     Dosage: 4 G/DAY
     Route: 042
  4. CEFTRIAXONE SODIUM [Suspect]
     Dosage: 1 G/DAY
     Dates: start: 20101019, end: 20101109
  5. ROMIKACIN [Concomitant]
     Dosage: 200MG/DAY
     Dates: start: 20101022, end: 20101022
  6. ADALAT CC [Concomitant]
     Dosage: 10 MG
  7. CADEMESIN [Concomitant]
     Dosage: 1MG
     Dates: start: 20100930
  8. SOLDEM [Concomitant]
     Dosage: 500ML
     Dates: start: 20101020, end: 20101024
  9. ASPIRIN [Concomitant]
     Dosage: 1DF
     Route: 048
     Dates: start: 20100930
  10. ALEROFF [Concomitant]
     Dosage: 20MG
     Route: 048
     Dates: start: 20100930
  11. OMEPRAZOLE [Concomitant]
     Dosage: 20MG
     Route: 048
     Dates: start: 20100930
  12. D ALFA [Concomitant]
     Dosage: 0.25?G
     Route: 048
     Dates: start: 20100930
  13. ROMIKACIN [Concomitant]
     Dosage: 04 GM
  14. SENNOSIDE [Concomitant]
     Dosage: 24MG
     Route: 048
     Dates: start: 20100930
  15. CEFTRIAXONE SODIUM [Suspect]
     Dosage: 02GM/DAY
     Dates: start: 20101021, end: 20101109
  16. NU-LOTAN [Concomitant]
     Dosage: 100MG
     Route: 048
     Dates: start: 20100930
  17. URSODEOXYCHOLIC ACID [Concomitant]
     Dosage: 600 MG
     Route: 048
     Dates: start: 20101007
  18. SUBVITAN [Concomitant]
     Dosage: 1DF
     Dates: start: 20101021, end: 20101024

REACTIONS (4)
  - ALTERED STATE OF CONSCIOUSNESS [None]
  - COMA [None]
  - OVERDOSE [None]
  - PYREXIA [None]
